FAERS Safety Report 7133284-X (Version None)
Quarter: 2010Q4

REPORT INFORMATION
  Report Type: 
  Country: None (occurrence: None)
  Receive Date: 20101117
  Receipt Date: 20101102
  Transmission Date: 20110411
  Serious: Yes (Disabling, Other)
  Sender: FDA-Public Use
  Company Number: 2010004465

PATIENT
  Age: 37 Year
  Sex: Female
  Weight: 90.7194 kg

DRUGS (5)
  1. PROVIGIL [Suspect]
     Indication: NARCOLEPSY
     Dosage: ( 200 MG, 1 IN 1 D, ORAL) (400 MG, 1 IN 1 D, ORAL) (600 MG, 1 IN 1 D, ORAL) (800, 1 IN 1 D, ORAL)
     Route: 048
     Dates: start: 20020801
  2. PROVIGIL [Suspect]
     Indication: NARCOLEPSY
     Dosage: ( 200 MG, 1 IN 1 D, ORAL) (400 MG, 1 IN 1 D, ORAL) (600 MG, 1 IN 1 D, ORAL) (800, 1 IN 1 D, ORAL)
     Route: 048
     Dates: start: 20030101
  3. PROVIGIL [Suspect]
     Indication: NARCOLEPSY
     Dosage: ( 200 MG, 1 IN 1 D, ORAL) (400 MG, 1 IN 1 D, ORAL) (600 MG, 1 IN 1 D, ORAL) (800, 1 IN 1 D, ORAL)
     Route: 048
     Dates: start: 20050101
  4. PROVIGIL [Suspect]
     Indication: NARCOLEPSY
     Dosage: ( 200 MG, 1 IN 1 D, ORAL) (400 MG, 1 IN 1 D, ORAL) (600 MG, 1 IN 1 D, ORAL) (800, 1 IN 1 D, ORAL)
     Route: 048
     Dates: start: 20080101
  5. EFFEXOR [Concomitant]

REACTIONS (3)
  - DRUG EFFECT DECREASED [None]
  - DRUG PRESCRIBING ERROR [None]
  - HYPERSENSITIVITY [None]
